FAERS Safety Report 5585567-2 (Version None)
Quarter: 2008Q1

REPORT INFORMATION
  Report Type: 
  Country: None (occurrence: None)
  Receive Date: 20080109
  Receipt Date: 20080103
  Transmission Date: 20080703
  Serious: Yes (Other)
  Sender: FDA-Public Use
  Company Number: B0361646A

PATIENT
  Age: 46 Year
  Sex: Female

DRUGS (2)
  1. PAROXETINE HYDROCHLORIDE [Suspect]
     Route: 065
     Dates: start: 20000330
  2. TRAZODONE HCL [Concomitant]
     Indication: SLEEP DISORDER
     Dates: start: 20070927

REACTIONS (7)
  - ANXIETY [None]
  - DRUG WITHDRAWAL SYNDROME [None]
  - HALLUCINATION [None]
  - HYPERHIDROSIS [None]
  - MIGRAINE [None]
  - PANIC ATTACK [None]
  - PARAESTHESIA [None]
